FAERS Safety Report 21983153 (Version 3)
Quarter: 2023Q1

REPORT INFORMATION
  Report Type: Report from Study
  Country: LB (occurrence: LB)
  Receive Date: 20230213
  Receipt Date: 20230224
  Transmission Date: 20230418
  Serious: Yes (Hospitalization)
  Sender: FDA-Public Use
  Company Number: LB-GBT-019826

PATIENT
  Age: 27 Year
  Sex: Male
  Weight: 62.5 kg

DRUGS (2)
  1. INCLACUMAB [Suspect]
     Active Substance: INCLACUMAB
     Indication: Sickle cell disease
     Dosage: KIT NUMBER ADMINISTERED 1010247, 1218283, 1218400, 1240874
     Dates: start: 20230126
  2. HYDREA [Concomitant]
     Active Substance: HYDROXYUREA
     Indication: Sickle cell disease
     Route: 048
     Dates: start: 2012

REACTIONS (1)
  - Infusion related reaction [Recovered/Resolved]

NARRATIVE: CASE EVENT DATE: 20230129
